FAERS Safety Report 10613391 (Version 1)
Quarter: 2014Q4

REPORT INFORMATION
  Report Type: Spontaneous
  Country: US (occurrence: US)
  Receive Date: 20141128
  Receipt Date: 20141128
  Transmission Date: 20150529
  Serious: Yes (Hospitalization)
  Sender: FDA-Public Use
  Company Number: US-JNJFOC-20141116724

PATIENT
  Age: 62 Year
  Sex: Female
  Weight: 61.69 kg

DRUGS (12)
  1. VARENICLINE TARTRATE [Suspect]
     Active Substance: VARENICLINE TARTRATE
     Indication: SMOKING CESSATION THERAPY
     Route: 048
     Dates: start: 20131118, end: 20131121
  2. ESTRADIOL. [Concomitant]
     Active Substance: ESTRADIOL
     Route: 065
     Dates: start: 2004
  3. SIMPONI [Suspect]
     Active Substance: GOLIMUMAB
     Indication: RHEUMATOID ARTHRITIS
     Route: 058
     Dates: start: 201206, end: 20140201
  4. METHOTREXATE [Suspect]
     Active Substance: METHOTREXATE
     Indication: RHEUMATOID ARTHRITIS
     Route: 048
     Dates: start: 2008, end: 20140201
  5. ASPIRIN. [Concomitant]
     Active Substance: ASPIRIN
     Route: 065
     Dates: start: 20050524
  6. NAPROXEN. [Concomitant]
     Active Substance: NAPROXEN
     Route: 065
     Dates: start: 2008, end: 20140228
  7. VARENICLINE TARTRATE [Suspect]
     Active Substance: VARENICLINE TARTRATE
     Indication: SMOKING CESSATION THERAPY
     Route: 048
     Dates: start: 20131115, end: 20131117
  8. METOPROLOL [Concomitant]
     Active Substance: METOPROLOL
     Route: 065
     Dates: start: 20050524
  9. SPIRONOLACTONE. [Concomitant]
     Active Substance: SPIRONOLACTONE
     Route: 065
     Dates: start: 2005
  10. LIPITOR [Concomitant]
     Active Substance: ATORVASTATIN CALCIUM
     Route: 065
     Dates: start: 20050524, end: 20140228
  11. FOLIC ACID. [Concomitant]
     Active Substance: FOLIC ACID
     Route: 065
     Dates: start: 2008
  12. VARENICLINE TARTRATE [Suspect]
     Active Substance: VARENICLINE TARTRATE
     Indication: SMOKING CESSATION THERAPY
     Route: 048
     Dates: start: 20131122, end: 20140105

REACTIONS (3)
  - Device related infection [Not Recovered/Not Resolved]
  - Lung carcinoma cell type unspecified stage IV [Unknown]
  - Pneumonia [Recovered/Resolved]

NARRATIVE: CASE EVENT DATE: 20131022
